FAERS Safety Report 20680664 (Version 1)
Quarter: 2022Q2

REPORT INFORMATION
  Report Type: Spontaneous
  Country: US (occurrence: None)
  Receive Date: 20220405
  Receipt Date: 20220405
  Transmission Date: 20220721
  Serious: Yes (Hospitalization)
  Sender: FDA-Public Use
  Company Number: None

PATIENT
  Sex: Female

DRUGS (10)
  1. TACROLIMUS [Suspect]
     Active Substance: TACROLIMUS
     Indication: Liver transplant
     Dosage: TAKE 3 CAPSULES (1.5MG TOTAL) BY MOUTH 2 TIMES DAILY.
     Route: 048
     Dates: start: 20190424
  2. ASPIRIN [Concomitant]
     Active Substance: ASPIRIN
  3. ESTARYLLA [Concomitant]
     Active Substance: ETHINYL ESTRADIOL\NORGESTIMATE
  4. EVEROLIMUS [Concomitant]
     Active Substance: EVEROLIMUS
  5. OMEPRAZOLE [Concomitant]
     Active Substance: OMEPRAZOLE
  6. ROSUVASTATIN [Concomitant]
     Active Substance: ROSUVASTATIN
  7. TOPAMAX [Concomitant]
     Active Substance: TOPIRAMATE
  8. TRAMADOL HCL [Concomitant]
     Active Substance: TRAMADOL HYDROCHLORIDE
  9. VRAYLAR [Concomitant]
     Active Substance: CARIPRAZINE
  10. XANAX [Concomitant]
     Active Substance: ALPRAZOLAM

REACTIONS (3)
  - Mental status changes [None]
  - Disorientation [None]
  - Mental disorder [None]
